FAERS Safety Report 4285503-5 (Version None)
Quarter: 2004Q1

REPORT INFORMATION
  Report Type: 
  Country: None (occurrence: None)
  Receive Date: 20040202
  Receipt Date: 20040116
  Transmission Date: 20041129
  Serious: Yes (Hospitalization)
  Sender: FDA-Public Use
  Company Number: 203511

PATIENT
  Age: 46 Year
  Sex: Female
  Weight: 61.8 kg

DRUGS (3)
  1. HERCEPTIN [Suspect]
     Indication: BREAST CANCER METASTATIC
     Dosage: SEE IMAGE
     Route: 042
     Dates: start: 20031103, end: 20031103
  2. HERCEPTIN [Suspect]
     Indication: BREAST CANCER METASTATIC
     Dosage: SEE IMAGE
     Route: 042
     Dates: start: 20031104
  3. DOCETAXEL (DOCETAXEL) [Suspect]
     Indication: BREAST CANCER METASTATIC
     Dosage: 168 MG, Q3W, INTRAVENOUS
     Route: 042
     Dates: start: 20031104

REACTIONS (11)
  - ALPHA HAEMOLYTIC STREPTOCOCCAL INFECTION [None]
  - BLOOD PRESSURE SYSTOLIC INCREASED [None]
  - COUGH [None]
  - FEBRILE NEUTROPENIA [None]
  - HAEMATOCRIT DECREASED [None]
  - HAEMOGLOBIN DECREASED [None]
  - MALAISE [None]
  - PNEUMONIA [None]
  - PSEUDOMONAS INFECTION [None]
  - RESPIRATORY RATE INCREASED [None]
  - STAPHYLOCOCCAL INFECTION [None]
